FAERS Safety Report 5286574-X (Version None)
Quarter: 2007Q1

REPORT INFORMATION
  Report Type: 
  Country: None (occurrence: None)
  Receive Date: 20070116
  Receipt Date: 20061117
  Transmission Date: 20070707
  Serious: No
  Sender: FDA-Public Use
  Company Number: 2006SP004107

PATIENT
  Sex: Female
  Weight: 58.9676 kg

DRUGS (9)
  1. LUNESTA [Suspect]
     Indication: INSOMNIA
     Dosage: SEE IMAGE
     Route: 048
     Dates: start: 20060101, end: 20060101
  2. LUNESTA [Suspect]
     Indication: INSOMNIA
     Dosage: SEE IMAGE
     Route: 048
     Dates: start: 20060101
  3. ATENOLOL [Concomitant]
  4. TUMS [Concomitant]
  5. DULCOLAX [Concomitant]
  6. COLACE [Concomitant]
  7. ASPIRIN [Concomitant]
  8. FOSAMAX [Concomitant]
  9. VITAMIN CAP [Concomitant]

REACTIONS (3)
  - DYSGEUSIA [None]
  - HANGOVER [None]
  - REBOUND EFFECT [None]
